FAERS Safety Report 6188520-3 (Version None)
Quarter: 2009Q2

REPORT INFORMATION
  Report Type: 
  Country: None (occurrence: None)
  Receive Date: 20090511
  Receipt Date: 20090501
  Transmission Date: 20091009
  Serious: Yes (Other)
  Sender: FDA-Public Use
  Company Number: 2009AP001820

PATIENT
  Sex: Male

DRUGS (2)
  1. LISINOPRIL [Suspect]
     Indication: BLOOD PRESSURE
     Dosage: 20 MG;QD;PO
     Route: 048
     Dates: start: 20090223, end: 20090329
  2. LISINOPRIL [Concomitant]

REACTIONS (1)
  - BLOOD PRESSURE FLUCTUATION [None]
